FAERS Safety Report 4654267-5 (Version None)
Quarter: 2005Q2

REPORT INFORMATION
  Report Type: 
  Country: None (occurrence: None)
  Receive Date: 20050404
  Receipt Date: 20041207
  Transmission Date: 20051028
  Serious: No
  Sender: FDA-Public Use
  Company Number: USA041285905

PATIENT
  Age: 76 Year
  Sex: Male

DRUGS (7)
  1. CYMBALTA [Suspect]
     Dosage: 30 MG
     Dates: start: 20041101, end: 20041101
  2. WELLBUTRIN [Concomitant]
  3. BUSPAR [Concomitant]
  4. CLONOPIN (CLONAZEPAM) [Concomitant]
  5. INSULIN [Concomitant]
  6. PLAVIX [Concomitant]
  7. LASIX [Concomitant]

REACTIONS (2)
  - CONFUSIONAL STATE [None]
  - DELIRIUM [None]
